FAERS Safety Report 19811728 (Version 1)
Quarter: 2021Q3

REPORT INFORMATION
  Report Type: Spontaneous
  Country: US (occurrence: US)
  Receive Date: 20210909
  Receipt Date: 20210909
  Transmission Date: 20211014
  Serious: No
  Sender: FDA-Public Use
  Company Number: US-PFIZER INC-202101145808

PATIENT
  Age: 76 Year
  Sex: Female

DRUGS (1)
  1. XELJANZ XR [Suspect]
     Active Substance: TOFACITINIB CITRATE
     Dosage: 11 MG
     Dates: start: 20201001, end: 20210722

REACTIONS (8)
  - Urinary tract infection [Unknown]
  - Chills [Unknown]
  - Polyuria [Unknown]
  - Eye swelling [Unknown]
  - Night sweats [Unknown]
  - Dysuria [Unknown]
  - Swelling face [Unknown]
  - Cough [Unknown]
